FAERS Safety Report 6489592-9 (Version None)
Quarter: 2009Q4

REPORT INFORMATION
  Report Type: 
  Country: None (occurrence: None)
  Receive Date: 20091207
  Receipt Date: 20091126
  Transmission Date: 20100525
  Serious: Yes (Disabling)
  Sender: FDA-Public Use
  Company Number: OSCN-PR-0912L-0514

PATIENT
  Sex: Female

DRUGS (1)
  1. OMNISCAN [Suspect]
     Indication: DRUG USE FOR UNKNOWN INDICATION
     Dosage: THREE ADMINISTRATIONS; THREE - UNSPECIFIED

REACTIONS (10)
  - ARTERIOVENOUS FISTULA [None]
  - ARTHRALGIA [None]
  - DIALYSIS [None]
  - EOSINOPHILIC FASCIITIS [None]
  - FATIGUE [None]
  - HAEMODIALYSIS [None]
  - HYPERSENSITIVITY [None]
  - METABOLIC ACIDOSIS [None]
  - NEPHROGENIC SYSTEMIC FIBROSIS [None]
  - THROMBOCYTOPENIA [None]
